FAERS Safety Report 5186539-2 (Version None)
Quarter: 2006Q4

REPORT INFORMATION
  Report Type: 
  Country: None (occurrence: None)
  Receive Date: 20061213
  Receipt Date: 20061201
  Transmission Date: 20070319
  Serious: Yes (Death, Hospitalization)
  Sender: FDA-Public Use
  Company Number: 2006JP004979

PATIENT
  Age: 65 Year
  Sex: Male
  Weight: 63.6 kg

DRUGS (13)
  1. FUNGUARD (MICAFUNGIN) INJECTION [Suspect]
     Indication: FUNGAEMIA
     Dosage: 300 MG, IV DRIP
     Route: 041
     Dates: start: 20060804, end: 20060806
  2. ITRIZOLE (ITRACONAZOLE) PER ORAL NOS [Concomitant]
  3. CEFTAZIDIME [Concomitant]
  4. EXACIN (ISEPAMICIN SULFATE) INJECTION [Concomitant]
  5. AMIKACIN SULFATE [Concomitant]
  6. PANSPORIN (CEFOTIAM HYDROCHLORIDE) INJECTION [Concomitant]
  7. BAKTAR (SULFAMETHOXAZOLE, TRIMETHOPRIM) PER ORAL NOS [Concomitant]
  8. FINIBAX INJECTION [Concomitant]
  9. OZEX (TOSUFLOXACIN TOSILATE) PER ORAL NOS [Concomitant]
  10. NEUTROGIN (LENOGRASTIM) INJECTION [Concomitant]
  11. VENOFLOBULIN-IH (IMMUNOGLOBULIN HUMAN NORMAL) INJECTION [Concomitant]
  12. PREDOPA (DOPAMINE HYDROCHLORIDE) INJECTION [Concomitant]
  13. SOLU-MEDROL [Concomitant]

REACTIONS (5)
  - ACUTE RESPIRATORY DISTRESS SYNDROME [None]
  - CONTINUOUS HAEMODIAFILTRATION [None]
  - HEPATIC FAILURE [None]
  - INFECTION [None]
  - RENAL FAILURE [None]
